FAERS Safety Report 5044948-6 (Version None)
Quarter: 2006Q3

REPORT INFORMATION
  Report Type: 
  Country: None (occurrence: None)
  Receive Date: 20060705
  Receipt Date: 20060621
  Transmission Date: 20061208
  Serious: Yes (Other)
  Sender: FDA-Public Use
  Company Number: 200613969BWH

PATIENT
  Sex: Male
  Weight: 92.9874 kg

DRUGS (1)
  1. NEXAVAR [Suspect]
     Indication: RENAL CELL CARCINOMA STAGE UNSPECIFIED
     Dosage: 400 MG, BID, ORAL
     Route: 048
     Dates: start: 20060509

REACTIONS (4)
  - BLOOD PHOSPHORUS DECREASED [None]
  - PRURITUS [None]
  - RASH [None]
  - THROMBOSIS [None]
